FAERS Safety Report 13184650 (Version 3)
Quarter: 2017Q1

REPORT INFORMATION
  Report Type: Report from Study
  Country: US (occurrence: US)
  Receive Date: 20170203
  Receipt Date: 20170317
  Transmission Date: 20170428
  Serious: Yes (Hospitalization, Other)
  Sender: FDA-Public Use
  Company Number: US-GILEAD-2017-0254429

PATIENT
  Age: 77 Year
  Sex: Female

DRUGS (10)
  1. AMBRISENTAN [Suspect]
     Active Substance: AMBRISENTAN
     Indication: PULMONARY ARTERIAL HYPERTENSION
     Dosage: 10 MG, QD
     Route: 065
     Dates: start: 20161025
  2. LEVEMIR [Concomitant]
     Active Substance: INSULIN DETEMIR
  3. TORSEMIDE. [Concomitant]
     Active Substance: TORSEMIDE
     Dosage: 40 MG, BID
     Route: 048
  4. ATORVASTATIN [Concomitant]
     Active Substance: ATORVASTATIN
     Dosage: 20 MG, QD
     Route: 048
  5. LOSARTAN. [Concomitant]
     Active Substance: LOSARTAN
     Dosage: 25 MG, QD
  6. SPIRONOLACTONE. [Concomitant]
     Active Substance: SPIRONOLACTONE
     Dosage: 12.5 MG, QD
     Route: 048
  7. HUMALOG [Concomitant]
     Active Substance: INSULIN LISPRO
  8. SILDENAFIL. [Concomitant]
     Active Substance: SILDENAFIL
     Dosage: 40 MG, TID
     Route: 048
  9. WARFARIN [Concomitant]
     Active Substance: WARFARIN
  10. METOLAZONE. [Concomitant]
     Active Substance: METOLAZONE
     Dosage: 2.5 MG, UNK
     Route: 048

REACTIONS (12)
  - Asthenia [Not Recovered/Not Resolved]
  - Acute respiratory failure [Recovered/Resolved]
  - Atrial fibrillation [Recovered/Resolved]
  - Urine output decreased [Unknown]
  - Hypotension [Unknown]
  - Urinary tract infection [Recovered/Resolved]
  - Lethargy [Unknown]
  - Mental status changes [Unknown]
  - Urinary tract infection [Recovered/Resolved]
  - Cardiac failure congestive [Recovered/Resolved]
  - Hypophagia [Unknown]
  - Unevaluable event [Recovered/Resolved]

NARRATIVE: CASE EVENT DATE: 20170203
